FAERS Safety Report 5241353-4 (Version None)
Quarter: 2007Q1

REPORT INFORMATION
  Report Type: 
  Country: None (occurrence: None)
  Receive Date: 20070220
  Receipt Date: 20070212
  Transmission Date: 20070707
  Serious: Yes (Other)
  Sender: FDA-Public Use
  Company Number: DE-ELI_LILLY_AND_COMPANY-DE200702002898

PATIENT
  Age: 63 Year
  Sex: Male
  Weight: 76.4 kg

DRUGS (1)
  1. ZYPREXA [Suspect]
     Indication: DELUSION
     Dosage: 7.5 MG, DAILY (1/D)
     Route: 048
     Dates: start: 20070129, end: 20070205

REACTIONS (1)
  - DEEP VEIN THROMBOSIS [None]
